FAERS Safety Report 5714215-3 (Version None)
Quarter: 2008Q2

REPORT INFORMATION
  Report Type: 
  Country: None (occurrence: None)
  Receive Date: 20080423
  Receipt Date: 20080219
  Transmission Date: 20081010
  Serious: No
  Sender: FDA-Public Use
  Company Number: US-KINGPHARMUSA00001-K200800216

PATIENT

DRUGS (2)
  1. SKELAXIN [Suspect]
     Indication: BACK PAIN
     Dosage: 800 MG (1 TABLET 3-4 TIMES DAILY)
     Route: 048
  2. ADVIL /00109201/ [Concomitant]
     Indication: BACK PAIN
     Route: 048

REACTIONS (1)
  - CONSTIPATION [None]
